FAERS Safety Report 4500216-X (Version None)
Quarter: 2004Q3

REPORT INFORMATION
  Report Type: 
  Country: None (occurrence: None)
  Receive Date: 20040927
  Receipt Date: 20040714
  Transmission Date: 20050211
  Serious: No
  Sender: FDA-Public Use
  Company Number: USA040772667

PATIENT
  Age: 49 Year
  Sex: Female

DRUGS (7)
  1. STRATTERA [Suspect]
     Indication: ATTENTION DEFICIT/HYPERACTIVITY DISORDER
     Dosage: 50 MG/1 DAY
     Dates: start: 20040501
  2. EFFEXOR XR [Concomitant]
  3. BUSPAR [Concomitant]
  4. FERROUS SULFATE TAB [Concomitant]
  5. FOLIC ACID [Concomitant]
  6. PREDNISONE [Concomitant]
  7. FAMOTIDINE [Concomitant]

REACTIONS (3)
  - CONTUSION [None]
  - FATIGUE [None]
  - PLATELET COUNT DECREASED [None]
